FAERS Safety Report 22881615 (Version 5)
Quarter: 2023Q4

REPORT INFORMATION
  Report Type: Spontaneous
  Country: US (occurrence: US)
  Receive Date: 20230830
  Receipt Date: 20231108
  Transmission Date: 20240110
  Serious: Yes (Other)
  Sender: FDA-Public Use
  Company Number: US-BRISTOL-MYERS SQUIBB COMPANY-2023-122183

PATIENT
  Age: 89 Year
  Sex: Male
  Weight: 75.75 kg

DRUGS (5)
  1. REVLIMID [Suspect]
     Active Substance: LENALIDOMIDE
     Indication: Plasma cell myeloma
     Dosage: 1 CAPSULE DAILY FOR 21 DAYS ON THEN 7 DAYS OF
     Route: 048
     Dates: start: 20221108
  2. REVLIMID [Suspect]
     Active Substance: LENALIDOMIDE
     Dosage: 1 CAPSULE DAILY FOR 21 DAYS ON, THEN 7 DAYS OFF/D1-21 Q 28 DAYS
     Route: 048
     Dates: start: 20221212
  3. REVLIMID [Suspect]
     Active Substance: LENALIDOMIDE
     Dosage: 1 CAPSULE DAILY FOR 21 DAYS ON, THEN 7 ?DAYS OFF
     Route: 048
     Dates: start: 20230912
  4. REVLIMID [Suspect]
     Active Substance: LENALIDOMIDE
     Dosage: DAILY X 21 DAYS ON AND 7 DAYS OFF
     Route: 048
     Dates: start: 20221114
  5. LENALIDOMIDE [Suspect]
     Active Substance: LENALIDOMIDE
     Indication: Plasma cell myeloma

REACTIONS (8)
  - Cellulitis [Not Recovered/Not Resolved]
  - Anxiety [Not Recovered/Not Resolved]
  - Aggression [Not Recovered/Not Resolved]
  - Product dose omission in error [Unknown]
  - Personality change [Not Recovered/Not Resolved]
  - Mood altered [Recovering/Resolving]
  - Skin laceration [Not Recovered/Not Resolved]
  - Agitation [Not Recovered/Not Resolved]

NARRATIVE: CASE EVENT DATE: 20230914
